FAERS Safety Report 8889669 (Version 3)
Quarter: 2012Q4

REPORT INFORMATION
  Report Type: 
  Country: US (occurrence: US)
  Receive Date: 20121107
  Receipt Date: 20121130
  Transmission Date: 20130627
  Serious: Yes (Hospitalization)
  Sender: FDA-Public Use
  Company Number: US-BIOGENIDEC-2012BI050351

PATIENT
  Age: 55 Year
  Sex: Female

DRUGS (4)
  1. TYSABRI [Suspect]
     Indication: MULTIPLE SCLEROSIS
     Route: 042
     Dates: start: 20090317
  2. OXYBUTYNIN [Concomitant]
  3. BACLOFEN [Concomitant]
  4. VENLAFAXINE [Concomitant]

REACTIONS (6)
  - Pneumonia [Not Recovered/Not Resolved]
  - Asthenia [Not Recovered/Not Resolved]
  - Ear infection [Recovered/Resolved]
  - Escherichia urinary tract infection [Unknown]
  - Anaemia [Unknown]
  - Pyrexia [Recovered/Resolved]
